FAERS Safety Report 5809522-X (Version None)
Quarter: 2008Q3

REPORT INFORMATION
  Report Type: 
  Country: None (occurrence: None)
  Receive Date: 20080709
  Receipt Date: 20080624
  Transmission Date: 20090109
  Serious: Yes (Hospitalization, Other)
  Sender: FDA-Public Use
  Company Number: 2008S1011519

PATIENT
  Age: 77 Year
  Sex: Male

DRUGS (1)
  1. WARFARIN SODIUM [Suspect]
     Indication: ATRIAL FIBRILLATION

REACTIONS (17)
  - ANAL SPHINCTER ATONY [None]
  - AREFLEXIA [None]
  - BALANCE DISORDER [None]
  - BEDRIDDEN [None]
  - CONSTIPATION [None]
  - EXTRADURAL HAEMATOMA [None]
  - FACET JOINT SYNDROME [None]
  - HYPOAESTHESIA [None]
  - INTERNATIONAL NORMALISED RATIO DECREASED [None]
  - MUSCULAR WEAKNESS [None]
  - NOCTURIA [None]
  - PAIN IN EXTREMITY [None]
  - PARESIS [None]
  - SENSORY LOSS [None]
  - URINARY INCONTINENCE [None]
  - URINARY RETENTION [None]
  - URINARY TRACT INFECTION [None]
